FAERS Safety Report 8459297 (Version 2)
Quarter: 2013Q1

REPORT INFORMATION
  Report Type: Spontaneous
  Country: DK (occurrence: JP)
  Receive Date: 20120314
  Receipt Date: 20130130
  Transmission Date: 20140127
  Serious: Yes (Other)
  Sender: FDA-Public Use
  Company Number: JP-FRI-1000029057

PATIENT
  Sex: Female

DRUGS (4)
  1. LEXAPRO [Suspect]
     Indication: DEPRESSION
     Dosage: 10 MG
     Route: 048
     Dates: start: 20110905, end: 20110911
  2. LEXAPRO [Suspect]
     Indication: DEPRESSION
     Dosage: 20 MG
     Dates: start: 20110912, end: 20111104
  3. MYSLEE [Concomitant]
     Route: 048
  4. MEILAX [Concomitant]
     Route: 048

REACTIONS (1)
  - Visual acuity reduced [Recovering/Resolving]
